FAERS Safety Report 25716958 (Version 4)
Quarter: 2025Q4

REPORT INFORMATION
  Report Type: Spontaneous
  Country: US (occurrence: US)
  Receive Date: 20250822
  Receipt Date: 20251231
  Transmission Date: 20260117
  Serious: No
  Sender: BRISTOL-MYERS SQUIBB COMPANY
  Company Number: US-BRISTOL-MYERS SQUIBB COMPANY-2025-117185

PATIENT
  Age: 68 Year
  Sex: Female

DRUGS (3)
  1. ORENCIA [Suspect]
     Active Substance: ABATACEPT
     Indication: Rheumatoid arthritis
     Route: 058
     Dates: start: 202508
  2. ORENCIA [Suspect]
     Active Substance: ABATACEPT
     Indication: Chronic obstructive pulmonary disease
     Route: 058
     Dates: start: 202508
  3. OHTUVAYRE INH SUSP [Concomitant]
     Indication: Product used for unknown indication

REACTIONS (3)
  - Joint swelling [Not Recovered/Not Resolved]
  - Arthralgia [Not Recovered/Not Resolved]
  - Hot flush [Not Recovered/Not Resolved]
